FAERS Safety Report 9322603 (Version 1)
Quarter: 2013Q2

REPORT INFORMATION
  Report Type: Report from Study
  Country: US (occurrence: US)
  Receive Date: 20130531
  Receipt Date: 20130531
  Transmission Date: 20140414
  Serious: Yes (Hospitalization)
  Sender: FDA-Public Use
  Company Number: US-US-EMD SERONO, INC.-7214511

PATIENT
  Sex: Male
  Weight: 44 kg

DRUGS (1)
  1. REBIF [Suspect]
     Indication: MULTIPLE SCLEROSIS
     Route: 058
     Dates: start: 20070504

REACTIONS (6)
  - Gallbladder disorder [Unknown]
  - Diplopia [Not Recovered/Not Resolved]
  - Loss of control of legs [Unknown]
  - Balance disorder [Not Recovered/Not Resolved]
  - Multiple sclerosis relapse [Recovered/Resolved with Sequelae]
  - Fatigue [Not Recovered/Not Resolved]
